FAERS Safety Report 6819282-1 (Version None)
Quarter: 2010Q3

REPORT INFORMATION
  Report Type: 
  Country: None (occurrence: None)
  Receive Date: 20100707
  Receipt Date: 20100301
  Transmission Date: 20110219
  Serious: Yes (Other)
  Sender: FDA-Public Use
  Company Number: US-ASTRAZENECA-2007UW01961

PATIENT
  Age: 36 Year
  Sex: Female
  Weight: 102.5 kg

DRUGS (37)
  1. SEROQUEL [Suspect]
     Indication: SLEEP DISORDER
     Dosage: 25 MG TO 300 MG
     Route: 048
     Dates: start: 20031120
  2. SEROQUEL [Suspect]
     Route: 048
  3. DEPAKOTE ER [Concomitant]
  4. TRAZODONE HCL [Concomitant]
  5. LEXAPRO [Concomitant]
  6. LEXAPRO [Concomitant]
  7. LEXAPRO [Concomitant]
  8. CLONAZEPAM [Concomitant]
  9. CLONAZEPAM [Concomitant]
  10. TRICOR [Concomitant]
  11. TRICOR [Concomitant]
  12. NAPROXEN [Concomitant]
  13. AMBIEN [Concomitant]
  14. AMBIEN [Concomitant]
  15. METAGLIP [Concomitant]
     Dosage: 2.5 TO 500 MG
  16. LIPITOR [Concomitant]
  17. LITHIUM CARBONATE [Concomitant]
  18. NIASPAN [Concomitant]
  19. ABILIFY [Concomitant]
  20. ABILIFY [Concomitant]
  21. ACTOS [Concomitant]
  22. ACTOS [Concomitant]
  23. GEMFIBROZIL [Concomitant]
  24. GLIP/METFORM [Concomitant]
  25. LYRICA [Concomitant]
     Dosage: 50 TID TO 75 BID
     Dates: start: 20060101
  26. LYRICA [Concomitant]
  27. LYRICA [Concomitant]
  28. SPIRIVA HANDIHLR [Concomitant]
  29. HUMALOG PEN [Concomitant]
     Dosage: 75/25 INJ
  30. METFORMIN HCL [Concomitant]
  31. LISINOPRIL [Concomitant]
  32. ASCENSIA CONTOUR TES [Concomitant]
  33. ASCENSIA MICROLET MIS [Concomitant]
  34. LANTUS [Concomitant]
  35. EFFEXOR [Concomitant]
     Dates: start: 20020101
  36. REMERON [Concomitant]
     Dates: start: 20020101
  37. LORAZEPAM [Concomitant]
     Dates: start: 20020101

REACTIONS (10)
  - ABDOMINAL PAIN [None]
  - BLOOD CHOLESTEROL INCREASED [None]
  - BLOOD TRIGLYCERIDES INCREASED [None]
  - DIABETIC NEUROPATHY [None]
  - DIABETIC RETINOPATHY [None]
  - IMPAIRED HEALING [None]
  - OBESITY [None]
  - RHEUMATOID ARTHRITIS [None]
  - TYPE 2 DIABETES MELLITUS [None]
  - VISION BLURRED [None]
